FAERS Safety Report 7103629-5 (Version None)
Quarter: 2010Q4

REPORT INFORMATION
  Report Type: 
  Country: None (occurrence: None)
  Receive Date: 20101115
  Receipt Date: 20090821
  Transmission Date: 20110411
  Serious: No
  Sender: FDA-Public Use
  Company Number: US-KINGPHARMUSA00001-K200901028

PATIENT
  Sex: Female
  Weight: 63.492 kg

DRUGS (4)
  1. LEVOXYL [Suspect]
  2. ANTIHYPERTENSIVES [Concomitant]
     Indication: HYPERTENSION
  3. BUDESONIDE [Concomitant]
     Route: 045
  4. FLUTICASONE PROPIONATE [Concomitant]
     Dosage: UNK

REACTIONS (1)
  - DYSPNOEA [None]
